FAERS Safety Report 7771415-9 (Version None)
Quarter: 2011Q3

REPORT INFORMATION
  Report Type: 
  Country: None (occurrence: None)
  Receive Date: 20110922
  Receipt Date: 20100809
  Transmission Date: 20111222
  Serious: No
  Sender: FDA-Public Use
  Company Number: US-ASTRAZENECA-2007UW21474

PATIENT
  Age: 50 Year
  Sex: Female
  Weight: 76.7 kg

DRUGS (28)
  1. SEROQUEL [Suspect]
     Dosage: 100-300 MG
     Route: 048
     Dates: start: 20040720, end: 20070801
  2. SEROQUEL [Suspect]
     Route: 048
     Dates: start: 20040720
  3. SEROQUEL [Suspect]
     Route: 048
     Dates: start: 20040720
  4. SEROQUEL [Suspect]
     Route: 048
     Dates: start: 20040720
  5. SEROQUEL [Suspect]
     Dosage: 100-300 MG
     Route: 048
     Dates: start: 20040720, end: 20070801
  6. GEODON [Concomitant]
     Indication: PSYCHOTIC DISORDER
     Dosage: 80 MG IN MORNING AND 100 MG AT NIGHT
     Route: 048
  7. SEROQUEL [Suspect]
     Indication: DEPRESSION
     Dosage: 25 MG - 400 MG
     Route: 048
     Dates: start: 20040720, end: 20070829
  8. SEROQUEL [Suspect]
     Route: 048
     Dates: start: 20040720
  9. SEROQUEL [Suspect]
     Route: 048
     Dates: start: 20040720
  10. SEROQUEL [Suspect]
     Dosage: 100-300 MG
     Route: 048
     Dates: start: 20040720, end: 20070801
  11. GEODON [Concomitant]
     Dates: start: 20050101
  12. GEODON [Concomitant]
     Dates: start: 20050101
  13. SEROQUEL [Suspect]
     Indication: HALLUCINATION, AUDITORY
     Dosage: 25 MG - 400 MG
     Route: 048
     Dates: start: 20040720, end: 20070829
  14. SEROQUEL [Suspect]
     Indication: SCHIZOPHRENIA
     Dosage: 25 MG - 400 MG
     Route: 048
     Dates: start: 20040720, end: 20070829
  15. SEROQUEL [Suspect]
     Dosage: 100-300 MG
     Route: 048
     Dates: start: 20040720, end: 20070801
  16. SEROQUEL [Suspect]
     Dosage: 100-300 MG
     Route: 048
     Dates: start: 20040720, end: 20070801
  17. TRAZODONE HYDROCHLORIDE [Concomitant]
     Route: 048
  18. ALBUTEROL [Concomitant]
  19. FLOVENT [Concomitant]
  20. SEROQUEL [Suspect]
     Indication: MAJOR DEPRESSION
     Dosage: 25 MG - 400 MG
     Route: 048
     Dates: start: 20040720, end: 20070829
  21. SEROQUEL [Suspect]
     Indication: BIPOLAR DISORDER
     Dosage: 25 MG - 400 MG
     Route: 048
     Dates: start: 20040720, end: 20070829
  22. GEODON [Concomitant]
     Indication: AFFECTIVE DISORDER
     Dosage: 80 MG IN MORNING AND 100 MG AT NIGHT
     Route: 048
  23. SEROQUEL [Suspect]
     Route: 048
     Dates: start: 20040720
  24. SEROQUEL [Suspect]
     Dosage: 100-300 MG
     Route: 048
     Dates: start: 20040720, end: 20070801
  25. ZOLOFT [Concomitant]
     Dosage: 50 MG- 200 MG
     Route: 048
  26. LEXAPRO [Concomitant]
  27. SEROQUEL [Suspect]
     Indication: ANXIETY
     Dosage: 25 MG - 400 MG
     Route: 048
     Dates: start: 20040720, end: 20070829
  28. RISPERDAL [Concomitant]
     Dosage: 2 MG - 4 MG
     Route: 048

REACTIONS (4)
  - HYPERGLYCAEMIA [None]
  - TYPE 2 DIABETES MELLITUS [None]
  - BLOOD TRIGLYCERIDES INCREASED [None]
  - DIABETIC COMPLICATION [None]
